FAERS Safety Report 12425037 (Version 1)
Quarter: 2016Q2

REPORT INFORMATION
  Report Type: Spontaneous
  Country: GB (occurrence: GB)
  Receive Date: 20160601
  Receipt Date: 20160601
  Transmission Date: 20160815
  Serious: Yes (Other)
  Sender: FDA-Public Use
  Company Number: GB-009507513-1605GBR014030

PATIENT
  Age: 33 Year
  Sex: Male
  Weight: 76.2 kg

DRUGS (1)
  1. MOMETASONE FUROATE. [Suspect]
     Active Substance: MOMETASONE FUROATE
     Indication: TINNITUS
     Dosage: UNK
     Route: 045
     Dates: start: 20160511, end: 20160519

REACTIONS (2)
  - Deafness transitory [Not Recovered/Not Resolved]
  - Ear congestion [Not Recovered/Not Resolved]

NARRATIVE: CASE EVENT DATE: 20160515
